FAERS Safety Report 9607662 (Version 1)
Quarter: 2013Q4

REPORT INFORMATION
  Report Type: Spontaneous
  Country: US (occurrence: US)
  Receive Date: 20131009
  Receipt Date: 20131009
  Transmission Date: 20140711
  Serious: No
  Sender: FDA-Public Use
  Company Number: US-SANOFI-AVENTIS-2013SA024982

PATIENT
  Sex: Female

DRUGS (2)
  1. ARAVA [Suspect]
     Indication: PSORIATIC ARTHROPATHY
  2. PRISTIQ [Concomitant]

REACTIONS (4)
  - Withdrawal syndrome [Not Recovered/Not Resolved]
  - Migraine [Not Recovered/Not Resolved]
  - Dizziness [Not Recovered/Not Resolved]
  - Neuropathy peripheral [Not Recovered/Not Resolved]
